FAERS Safety Report 6517640-6 (Version None)
Quarter: 2009Q4

REPORT INFORMATION
  Report Type: 
  Country: None (occurrence: None)
  Receive Date: 20091224
  Receipt Date: 20091216
  Transmission Date: 20100525
  Serious: Yes (Other)
  Sender: FDA-Public Use
  Company Number: PHHY2009ES56200

PATIENT
  Age: 62 Year
  Sex: Female

DRUGS (2)
  1. ZOMETA [Suspect]
     Indication: METASTASES TO BONE
     Dosage: 4 MG, UNK
     Route: 042
     Dates: start: 20081003, end: 20091002
  2. ZOMETA [Suspect]
     Indication: BREAST CANCER

REACTIONS (1)
  - OSTEONECROSIS [None]
